FAERS Safety Report 4330029-3 (Version None)
Quarter: 2004Q1

REPORT INFORMATION
  Report Type: 
  Country: None (occurrence: None)
  Receive Date: 20040329
  Receipt Date: 20040315
  Transmission Date: 20041129
  Serious: Yes (Hospitalization)
  Sender: FDA-Public Use
  Company Number: 2004CG00529

PATIENT
  Age: 80 Year
  Sex: Female

DRUGS (6)
  1. TENORMIN [Suspect]
  2. MOPRAL [Suspect]
  3. CORDARONE [Concomitant]
  4. LEVOTHYROXINE SODIUM [Concomitant]
  5. ZOLPIDEM TARTRATE [Concomitant]
  6. TRIATEC [Concomitant]

REACTIONS (2)
  - LUMBAR SPINAL STENOSIS [None]
  - NEUROPATHY PERIPHERAL [None]
